FAERS Safety Report 9291006 (Version 1)
Quarter: 2013Q2

REPORT INFORMATION
  Report Type: Spontaneous
  Country: GB (occurrence: GB)
  Receive Date: 20130515
  Receipt Date: 20130515
  Transmission Date: 20140414
  Serious: Yes (Other)
  Sender: FDA-Public Use
  Company Number: GB-009507513-1305GBR005397

PATIENT
  Age: 54 Year
  Sex: Male

DRUGS (6)
  1. FOSAMAX [Suspect]
     Dosage: 70 MG, QW
     Route: 048
  2. MYCOPHENOLATE MOFETIL [Concomitant]
     Dosage: 1 G, BID
  3. PREDNISOLONE [Concomitant]
     Dosage: 7.5 MG, BID
  4. ALLOPURINOL [Concomitant]
     Dosage: 100 MG, QD
  5. ALFACALCIDOL [Concomitant]
     Dosage: 500 MG, QD
  6. OMEPRAZOLE [Concomitant]
     Dosage: 20 MG, QD

REACTIONS (2)
  - Osteonecrosis of jaw [Recovered/Resolved]
  - Post transplant lymphoproliferative disorder [Recovered/Resolved]
